FAERS Safety Report 14481856 (Version 1)
Quarter: 2018Q1

REPORT INFORMATION
  Report Type: Spontaneous
  Country: GB (occurrence: GB)
  Receive Date: 20180202
  Receipt Date: 20180202
  Transmission Date: 20180509
  Serious: Yes (Other)
  Sender: FDA-Public Use
  Company Number: GB-TEVA-2018-GB-853558

PATIENT
  Age: 89 Year
  Sex: Female
  Weight: 83 kg

DRUGS (18)
  1. OMEPRAZOLE. [Concomitant]
     Active Substance: OMEPRAZOLE
     Dosage: 1 DOSAGE FORMS DAILY;
     Dates: start: 20171113
  2. PARACETAMOL [Concomitant]
     Active Substance: ACETAMINOPHEN
     Dates: start: 20170317, end: 20171206
  3. CODEINE PHOSPHATE [Concomitant]
     Active Substance: CODEINE PHOSPHATE
     Dosage: 4 DOSAGE FORMS DAILY;
     Dates: start: 20171212
  4. PREDNISOLONE. [Concomitant]
     Active Substance: PREDNISOLONE
     Dosage: 30 MILLIGRAM DAILY;
     Dates: start: 20171026, end: 20171123
  5. CONOTRANE [Concomitant]
     Dosage: AS DIRECTED
     Dates: start: 20171110, end: 20171111
  6. CLOTRIMAZOLE. [Concomitant]
     Active Substance: CLOTRIMAZOLE
     Dosage: APPLY 2-3 TIMES/DAY
     Dates: start: 20171116, end: 20171123
  7. TRAMADOL. [Suspect]
     Active Substance: TRAMADOL
     Route: 065
     Dates: start: 20170317
  8. VOLTAROL [Concomitant]
     Active Substance: DICLOFENAC SODIUM
     Dosage: 3 DOSAGE FORMS DAILY; APPLY
     Dates: start: 20170317
  9. SALBUTAMOL [Concomitant]
     Active Substance: ALBUTEROL
     Dosage: EVERY 4 TO 6 HOURS
     Route: 055
     Dates: start: 20171026, end: 20171120
  10. GLYCERYL TRINITRATE [Concomitant]
     Active Substance: NITROGLYCERIN
     Dates: start: 20170821
  11. METANIUM [Concomitant]
     Dosage: APPLY
     Dates: start: 20171130, end: 20171201
  12. CO-AMILOFRUSE [Concomitant]
     Active Substance: AMILORIDE\FUROSEMIDE
     Dosage: 2 DOSAGE FORMS DAILY; MORNING
     Dates: start: 20170824
  13. ACIDEX [Concomitant]
     Active Substance: CALCIUM CARBONATE\SODIUM ALGINATE\SODIUM BICARBONATE
     Dosage: 40 ML DAILY;
     Dates: start: 20170821
  14. CLONAZEPAM. [Concomitant]
     Active Substance: CLONAZEPAM
     Dosage: .5 DOSAGE FORMS DAILY; NIGHT
     Dates: start: 20171113
  15. QUININE [Concomitant]
     Active Substance: QUININE
     Dosage: 1 DOSAGE FORMS DAILY; BEDTIME
     Dates: start: 20171113
  16. LOPERAMIDE [Concomitant]
     Active Substance: LOPERAMIDE
     Dosage: 2 IMMEDIATELY AND THEN 1 AFTER EACH LOOSE MOTION OR MAX 8 DAILY
     Dates: start: 20171205, end: 20171206
  17. ESTRADIOL. [Concomitant]
     Active Substance: ESTRADIOL
     Dosage: 1 DOSAGE FORMS DAILY; INSERT AT NIGHT
     Dates: start: 20171201, end: 20171202
  18. FENBID [Concomitant]
     Active Substance: IBUPROFEN
     Dosage: 3 DOSAGE FORMS DAILY; APPLY
     Dates: start: 20171123

REACTIONS (1)
  - Gastric disorder [Unknown]

NARRATIVE: CASE EVENT DATE: 20171212
